FAERS Safety Report 4299098-3 (Version None)
Quarter: 2004Q1

REPORT INFORMATION
  Report Type: 
  Country: None (occurrence: None)
  Receive Date: 20040217
  Receipt Date: 20031204
  Transmission Date: 20041129
  Serious: Yes (Hospitalization)
  Sender: FDA-Public Use
  Company Number: 805#1#2003-00046

PATIENT
  Age: 73 Year
  Sex: Female

DRUGS (13)
  1. ALPROSTADIL [Suspect]
     Indication: ATHEROSCLEROSIS OBLITERANS
     Dosage: 120 MCG (60 MCG 2 IN 1 DAY(S)) INTRAVENOUS DRIP; 60 MCG (60MCG 1 IN 1 DAY(S))
     Route: 041
     Dates: start: 20031016, end: 20031029
  2. ALPROSTADIL [Suspect]
     Indication: ATHEROSCLEROSIS OBLITERANS
     Dosage: 120 MCG (60 MCG 2 IN 1 DAY(S)) INTRAVENOUS DRIP; 60 MCG (60MCG 1 IN 1 DAY(S))
     Route: 041
     Dates: start: 20031030, end: 20031105
  3. PIPERACILLIN SODIUM [Concomitant]
  4. LASIX [Concomitant]
  5. CONIEL (BENIDIPINE HYDROCHLORIDE) [Concomitant]
  6. FERROMIA (FERROUS CITRATE) [Concomitant]
  7. GLUCONSAN K (POTASSIUM GLUCONATE) [Concomitant]
  8. ASPIRIN [Concomitant]
  9. ISOSORBIDE DINITRATE [Concomitant]
  10. FESIN (SACCHARATED IRON OXIDE) [Concomitant]
  11. CARBENIN (BETAMIPRON, PANIPENEM) [Concomitant]
  12. PROCYLIN (BERAPROST SODIUM) [Concomitant]
  13. ANPLAG (SARPOGRELATE HYDROCHLORIDE) [Concomitant]

REACTIONS (21)
  - ANAEMIA [None]
  - BLOOD CREATINE INCREASED [None]
  - BLOOD POTASSIUM DECREASED [None]
  - BLOOD POTASSIUM INCREASED [None]
  - BLOOD PRESSURE INCREASED [None]
  - BLOOD SODIUM DECREASED [None]
  - BLOOD UREA INCREASED [None]
  - BODY TEMPERATURE DECREASED [None]
  - C-REACTIVE PROTEIN INCREASED [None]
  - CARDIAC FAILURE CHRONIC [None]
  - CONDITION AGGRAVATED [None]
  - ELECTROCARDIOGRAM ST SEGMENT DEPRESSION [None]
  - GENERALISED OEDEMA [None]
  - HAEMOGLOBIN DECREASED [None]
  - MITRAL VALVE STENOSIS [None]
  - PLEURAL EFFUSION [None]
  - PROTEIN TOTAL DECREASED [None]
  - PULMONARY CONGESTION [None]
  - PYREXIA [None]
  - VENTRICULAR HYPERTROPHY [None]
  - WHITE BLOOD CELL COUNT DECREASED [None]
